FAERS Safety Report 13668674 (Version 1)
Quarter: 2017Q2

REPORT INFORMATION
  Report Type: Spontaneous
  Country: US (occurrence: US)
  Receive Date: 20170620
  Receipt Date: 20170620
  Transmission Date: 20170830
  Serious: No
  Sender: FDA-Public Use
  Company Number: None

PATIENT
  Sex: Female
  Weight: 98.5 kg

DRUGS (1)
  1. ASPIRIN. [Suspect]
     Active Substance: ASPIRIN
     Dates: end: 20170607

REACTIONS (7)
  - Chills [None]
  - Swelling face [None]
  - Gingival oedema [None]
  - Vomiting [None]
  - Pyrexia [None]
  - Gingival erythema [None]
  - Tooth fracture [None]

NARRATIVE: CASE EVENT DATE: 20170608
